FAERS Safety Report 6584230-9 (Version None)
Quarter: 2010Q1

REPORT INFORMATION
  Report Type: 
  Country: None (occurrence: None)
  Receive Date: 20100216
  Receipt Date: 20100112
  Transmission Date: 20100710
  Serious: No
  Sender: FDA-Public Use
  Company Number: US-ABBOTT-10P-163-0618812-00

PATIENT
  Sex: Male

DRUGS (2)
  1. SIMCOR [Suspect]
     Indication: BLOOD CHOLESTEROL INCREASED
     Dosage: AT BEDTIME
     Route: 048
     Dates: start: 20091228, end: 20100103
  2. SIMCOR [Suspect]
     Dosage: AT BEDTIME
     Route: 048
     Dates: start: 20100107

REACTIONS (2)
  - PAIN IN EXTREMITY [None]
  - SKIN BURNING SENSATION [None]
